FAERS Safety Report 9316047 (Version 1)
Quarter: 2013Q2

REPORT INFORMATION
  Report Type: Spontaneous
  Country: US (occurrence: US)
  Receive Date: 20130530
  Receipt Date: 20130530
  Transmission Date: 20140414
  Serious: No
  Sender: FDA-Public Use
  Company Number: US-BIOGENIDEC-2013BI047332

PATIENT
  Age: 37 Year
  Sex: 0

DRUGS (1)
  1. TYSABRI [Suspect]
     Indication: MULTIPLE SCLEROSIS
     Route: 042
     Dates: start: 20110408, end: 20110609

REACTIONS (4)
  - Drug intolerance [Unknown]
  - General symptom [Unknown]
  - Abasia [Unknown]
  - Multiple sclerosis relapse [Unknown]
